FAERS Safety Report 7505871-8 (Version None)
Quarter: 2011Q2

REPORT INFORMATION
  Report Type: 
  Country: None (occurrence: None)
  Receive Date: 20110526
  Receipt Date: 20110516
  Transmission Date: 20111010
  Serious: Yes (Other)
  Sender: FDA-Public Use
  Company Number: US-ELI_LILLY_AND_COMPANY-US201004006278

PATIENT
  Sex: Female

DRUGS (3)
  1. FORTEO [Suspect]
     Indication: OSTEOPOROSIS
     Dosage: 20 UG, DAILY (1/D)
     Route: 065
     Dates: start: 20100309
  2. FORTEO [Suspect]
     Dosage: 20 UG, DAILY (1/D)
     Route: 065
  3. FORTEO [Suspect]
     Dosage: 20 UG, DAILY (1/D)
     Route: 065

REACTIONS (10)
  - FALL [None]
  - PAIN IN EXTREMITY [None]
  - ARTHRITIS [None]
  - ABDOMINAL PAIN UPPER [None]
  - MICTURITION URGENCY [None]
  - CONTUSION [None]
  - BONE PAIN [None]
  - HYPOAESTHESIA [None]
  - ARTHRALGIA [None]
  - BACK PAIN [None]
